FAERS Safety Report 18991745 (Version 1)
Quarter: 2021Q1

REPORT INFORMATION
  Report Type: Spontaneous
  Country: US (occurrence: US)
  Receive Date: 20210310
  Receipt Date: 20210310
  Transmission Date: 20210420
  Serious: Yes (Hospitalization)
  Sender: FDA-Public Use
  Company Number: US-SA-2021SA070027

PATIENT
  Age: 64 Year
  Sex: Male

DRUGS (6)
  1. OXALIPLATIN. [Suspect]
     Active Substance: OXALIPLATIN
     Dosage: 255 MG, QCY
     Route: 042
     Dates: start: 20210107, end: 20210107
  2. TISLELIZUMAB [Suspect]
     Active Substance: TISLELIZUMAB
     Indication: OESOPHAGEAL ADENOCARCINOMA
     Dosage: 200 MG, QCY
     Route: 042
     Dates: start: 20210107, end: 20210107
  3. TISLELIZUMAB [Suspect]
     Active Substance: TISLELIZUMAB
     Dosage: 200 MG, QCY
     Route: 042
     Dates: start: 20210211, end: 20210211
  4. CAPECITABINE. [Suspect]
     Active Substance: CAPECITABINE
     Indication: OESOPHAGEAL ADENOCARCINOMA
     Dosage: 4000 MG, QCY
     Route: 048
     Dates: start: 20210107, end: 20210107
  5. OXALIPLATIN. [Suspect]
     Active Substance: OXALIPLATIN
     Dosage: 255 MG, QCY
     Route: 042
     Dates: start: 20210211, end: 20210211
  6. CAPECITABINE. [Suspect]
     Active Substance: CAPECITABINE
     Dosage: 4000 MG, QCY
     Route: 048
     Dates: start: 20210211, end: 20210211

REACTIONS (6)
  - Nausea [Not Recovered/Not Resolved]
  - Abdominal pain [Not Recovered/Not Resolved]
  - Hypotension [Not Recovered/Not Resolved]
  - Diarrhoea [Recovered/Resolved]
  - Chills [Not Recovered/Not Resolved]
  - Vomiting [Not Recovered/Not Resolved]

NARRATIVE: CASE EVENT DATE: 20210212
